FAERS Safety Report 22223065 (Version 1)
Quarter: 2023Q2

REPORT INFORMATION
  Report Type: Spontaneous
  Country: US (occurrence: None)
  Receive Date: 20230414
  Receipt Date: 20230414
  Transmission Date: 20230722
  Serious: No
  Sender: FDA-Public Use
  Company Number: None

PATIENT
  Age: 72 Year
  Sex: Male

DRUGS (2)
  1. CEFEPIME [Suspect]
     Active Substance: CEFEPIME HYDROCHLORIDE
     Route: 042
  2. CEFTAROLINE [Suspect]
     Active Substance: CEFTAROLINE
     Route: 042

REACTIONS (4)
  - Acute generalised exanthematous pustulosis [None]
  - Skin exfoliation [None]
  - Bullous impetigo [None]
  - Drug eruption [None]

NARRATIVE: CASE EVENT DATE: 20210424
